FAERS Safety Report 7242142-1 (Version None)
Quarter: 2011Q1

REPORT INFORMATION
  Report Type: 
  Country: None (occurrence: None)
  Receive Date: 20110124
  Receipt Date: 20110119
  Transmission Date: 20110831
  Serious: Yes (Other)
  Sender: FDA-Public Use
  Company Number: JP-PFIZER INC-2011008178

PATIENT
  Age: 84 Year
  Sex: Male

DRUGS (1)
  1. XALATAN [Suspect]
     Dosage: ONCE DAILY FOR LEFT EYE
     Route: 047
     Dates: start: 20100101

REACTIONS (2)
  - EYELID PTOSIS [None]
  - BLEPHARAL PIGMENTATION [None]
